FAERS Safety Report 6204398-3 (Version None)
Quarter: 2009Q2

REPORT INFORMATION
  Report Type: 
  Country: None (occurrence: None)
  Receive Date: 20090521
  Receipt Date: 20090511
  Transmission Date: 20091009
  Serious: Yes (Hospitalization)
  Sender: FDA-Public Use
  Company Number: 2009-193008-NL

PATIENT
  Age: 68 Year
  Sex: Female

DRUGS (4)
  1. MIRTAZAPINE [Suspect]
     Indication: DEPRESSION
     Dosage: 15 MG ORAL
     Route: 048
     Dates: start: 20081121
  2. LITHIUM CARBONATE [Suspect]
     Indication: DEPRESSION
     Dosage: 200 MG ORAL
     Route: 048
     Dates: start: 19960101
  3. DOXEPIN HYDROCHLORIDE [Concomitant]
  4. COTRIM [Concomitant]

REACTIONS (5)
  - BLOOD PRESSURE INCREASED [None]
  - BLOOD PROLACTIN INCREASED [None]
  - LOSS OF CONSCIOUSNESS [None]
  - NAUSEA [None]
  - SYNCOPE [None]
